FAERS Safety Report 5591515-1 (Version None)
Quarter: 2008Q1

REPORT INFORMATION
  Report Type: 
  Country: None (occurrence: None)
  Receive Date: 20080115
  Receipt Date: 20080105
  Transmission Date: 20080703
  Serious: Yes (Death)
  Sender: FDA-Public Use
  Company Number: US-JNJFOC-20080102890

PATIENT
  Sex: Male
  Weight: 82.56 kg

DRUGS (4)
  1. TRAMADOL HYDROCHLORIDE ER [Suspect]
     Route: 048
  2. TRAMADOL HYDROCHLORIDE ER [Suspect]
     Indication: OSTEOARTHRITIS
     Route: 048
  3. MELOXICAM [Suspect]
     Route: 048
  4. MELOXICAM [Suspect]
     Indication: OSTEOARTHRITIS
     Route: 048

REACTIONS (1)
  - DEATH [None]
